FAERS Safety Report 6122071-7 (Version None)
Quarter: 2009Q1

REPORT INFORMATION
  Report Type: 
  Country: None (occurrence: None)
  Receive Date: 20090316
  Receipt Date: 20090316
  Transmission Date: 20090719
  Serious: Yes (Other)
  Sender: FDA-Public Use
  Company Number: None

PATIENT
  Age: 69 Year
  Sex: Male
  Weight: 99.7913 kg

DRUGS (1)
  1. PROVENTIL-HFA [Suspect]
     Indication: DYSPNOEA
     Dosage: 120 MCG DAILY PO
     Route: 048

REACTIONS (2)
  - DEVICE INEFFECTIVE [None]
  - PRODUCT QUALITY ISSUE [None]
